FAERS Safety Report 8032634-X (Version None)
Quarter: 2012Q1

REPORT INFORMATION
  Report Type: 
  Country: None (occurrence: None)
  Receive Date: 20120110
  Receipt Date: 20110920
  Transmission Date: 20120608
  Serious: No
  Sender: FDA-Public Use
  Company Number: US-COVIDIEN/TYCO HEALTHCARE/MALLINCKRODT-T201101931

PATIENT
  Sex: Male

DRUGS (8)
  1. PREDNISONE TAB [Concomitant]
     Dosage: 5 MG, 1 HR PRIOR
     Route: 048
     Dates: start: 20110920
  2. BENADRYL [Concomitant]
     Indication: PREMEDICATION
     Dosage: 50 MG, 1 HR PRIOR
     Route: 048
     Dates: start: 20110920, end: 20110920
  3. OPTIRAY 160 [Suspect]
     Indication: COMPUTERISED TOMOGRAM
     Dosage: 100 ML, SINGLE
     Route: 042
     Dates: start: 20110920, end: 20110920
  4. LOPRESSOR [Concomitant]
  5. TRICOR [Concomitant]
  6. COUMADIN [Concomitant]
  7. PREDNISONE TAB [Concomitant]
     Indication: PREMEDICATION
     Dosage: 5 MG, 13 HRS PRIOR
     Route: 048
     Dates: start: 20110901, end: 20110901
  8. CYANOCOBALAMIN [Concomitant]

REACTIONS (3)
  - PRURITUS [None]
  - RASH [None]
  - GENERALISED ERYTHEMA [None]
